FAERS Safety Report 10055439 (Version 1)
Quarter: 2014Q2

REPORT INFORMATION
  Report Type: Spontaneous
  Country: KR (occurrence: KR)
  Receive Date: 20140403
  Receipt Date: 20140403
  Transmission Date: 20141212
  Serious: Yes (Hospitalization)
  Sender: FDA-Public Use
  Company Number: KR-009507513-1403KOR012387

PATIENT
  Age: 54 Year
  Sex: Female
  Weight: 54.5 kg

DRUGS (2)
  1. BRIDION [Suspect]
     Indication: NEUROMUSCULAR BLOCKADE REVERSAL
     Dosage: 109 MG,ONCE; 2MG/KG,
     Route: 042
     Dates: start: 20140121
  2. ROCURONIUM BROMIDE [Suspect]
     Indication: INDUCTION OF ANAESTHESIA
     Dosage: 50 ML, ONCE
     Route: 042
     Dates: start: 20140121

REACTIONS (1)
  - Impaired healing [Recovered/Resolved]
